FAERS Safety Report 9375308 (Version 2)
Quarter: 2013Q3

REPORT INFORMATION
  Report Type: Spontaneous
  Country: BE (occurrence: BE)
  Receive Date: 20130628
  Receipt Date: 20130719
  Transmission Date: 20140515
  Serious: Yes (Death, Life-Threatening, Hospitalization)
  Sender: FDA-Public Use
  Company Number: BE-VERTEX PHARMACEUTICALS INC-2013-007560

PATIENT
  Age: 51 Year
  Sex: Male
  Weight: 61 kg

DRUGS (14)
  1. INCIVO [Suspect]
     Indication: HEPATITIS C
     Dosage: TABLET
     Route: 065
     Dates: start: 20130315
  2. INCIVO [Suspect]
     Dosage: 1125 MG, BID, TABLET
     Route: 065
  3. COPEGUS [Suspect]
     Indication: HEPATITIS C
     Dosage: DOSAGE FORM: UNSPECIFIED
     Route: 065
     Dates: start: 20130315
  4. COPEGUS [Suspect]
     Dosage: DOSAGE FORM: UNSPECIFIED
     Route: 065
     Dates: start: 2013
  5. PEGASYS [Suspect]
     Indication: HEPATITIS C
     Dosage: DOSAGE FORM: INJECTION
     Route: 058
     Dates: start: 20130315
  6. PEGASYS [Suspect]
     Dosage: DOSAGE FORM: INJECTION
     Route: 058
     Dates: start: 2013
  7. MEDROL [Suspect]
     Indication: DYSPNOEA
     Dosage: DOSAGE FORM: UNSPECIFIED
     Route: 065
  8. ZITHROMAX [Concomitant]
     Dates: start: 20130526
  9. AUGMENTIN [Concomitant]
     Dates: start: 20130526
  10. PANTOMED [Concomitant]
     Dosage: 20 MG, QD
  11. AMLODIPINE [Concomitant]
     Dosage: 10 MG, QD
  12. PREDNISOLONE [Concomitant]
     Dosage: 5 MG, QD
  13. MONTELUKAST [Concomitant]
     Dosage: 10 MG, QD
  14. FLIXOTIDE [Concomitant]
     Dosage: DOSAGE FORM: INHALATION

REACTIONS (9)
  - Pancytopenia [Fatal]
  - Pneumonia staphylococcal [Fatal]
  - Septic shock [Fatal]
  - Acute respiratory distress syndrome [Unknown]
  - Pain in extremity [Unknown]
  - Asthenia [Unknown]
  - Muscular weakness [Unknown]
  - Transaminases increased [Unknown]
  - Rash [Unknown]
